FAERS Safety Report 9322662 (Version 1)
Quarter: 2013Q2

REPORT INFORMATION
  Report Type: Spontaneous
  Country: VN (occurrence: VN)
  Receive Date: 20130601
  Receipt Date: 20130601
  Transmission Date: 20140414
  Serious: Yes (Death)
  Sender: FDA-Public Use
  Company Number: VN-BAXTER-2013BAX019895

PATIENT
  Sex: Male

DRUGS (2)
  1. DIANEAL LOW CALCIUM (2,5MEQ.L) PERITIONEAL DIALYSIS SOLUTION WITH 1.5% [Suspect]
     Indication: PERITONEAL DIALYSIS
     Route: 033
     Dates: start: 20100928, end: 20130512
  2. DIANEAL LOW CALCIUM (2,5MEQ.L) PERITIONEAL DIALYSIS SOLUTION WITH 2.5% [Suspect]
     Indication: PERITONEAL DIALYSIS
     Route: 033
     Dates: start: 20100928, end: 20130512

REACTIONS (1)
  - Asthenia [Fatal]
